FAERS Safety Report 8077090-0 (Version None)
Quarter: 2012Q1

REPORT INFORMATION
  Report Type: 
  Country: None (occurrence: None)
  Receive Date: 20120127
  Receipt Date: 20120120
  Transmission Date: 20120608
  Serious: Yes (Hospitalization)
  Sender: FDA-Public Use
  Company Number: PHEH2012US002004

PATIENT
  Sex: Male

DRUGS (1)
  1. SANDIMMUNE [Suspect]
     Indication: RENAL TRANSPLANT
     Dosage: 2 ML, BID
     Route: 048
     Dates: start: 20111003

REACTIONS (1)
  - ATRIAL FIBRILLATION [None]
